FAERS Safety Report 8583473 (Version 3)
Quarter: 2013Q2

REPORT INFORMATION
  Report Type: Spontaneous
  Country: US (occurrence: US)
  Receive Date: 20120529
  Receipt Date: 20130502
  Transmission Date: 20140414
  Serious: Yes (Hospitalization)
  Sender: FDA-Public Use
  Company Number: US-ASTRAZENECA-2012SE32503

PATIENT
  Age: 77 Year
  Sex: Female

DRUGS (9)
  1. NEXIUM [Suspect]
     Indication: GASTROOESOPHAGEAL REFLUX DISEASE
     Route: 048
     Dates: start: 2000
  2. NEXIUM [Suspect]
     Indication: GASTROOESOPHAGEAL REFLUX DISEASE
     Route: 048
  3. TOPROL XL [Suspect]
     Route: 048
  4. HEART MEDICINE [Concomitant]
     Indication: CARDIAC DISORDER
  5. LUNG MEDICINE [Concomitant]
     Indication: LUNG DISORDER
  6. HIGH BLOOD PRESSURE MEDICINE [Concomitant]
     Indication: HYPERTENSION
  7. CHOLESTEROL MEDICINE [Concomitant]
     Indication: BLOOD CHOLESTEROL ABNORMAL
  8. VITAMINS [Concomitant]
  9. FISH OIL [Concomitant]

REACTIONS (3)
  - Pneumonia [Unknown]
  - Bronchiectasis [Unknown]
  - Chronic obstructive pulmonary disease [Unknown]
